FAERS Safety Report 6853309-6 (Version None)
Quarter: 2010Q3

REPORT INFORMATION
  Report Type: 
  Country: None (occurrence: None)
  Receive Date: 20100717
  Receipt Date: 20071206
  Transmission Date: 20110219
  Serious: No
  Sender: FDA-Public Use
  Company Number: US-PFIZER INC-2007104261

PATIENT
  Sex: Female
  Weight: 60.3 kg

DRUGS (3)
  1. CHANTIX [Suspect]
     Indication: SMOKING CESSATION THERAPY
     Dates: start: 20071203
  2. VICODIN [Concomitant]
     Indication: FIBROMYALGIA
  3. VICODIN [Concomitant]
     Indication: ARTHRITIS

REACTIONS (2)
  - MEDICATION ERROR [None]
  - NAUSEA [None]
